FAERS Safety Report 7951772-0 (Version None)
Quarter: 2011Q4

REPORT INFORMATION
  Report Type: 
  Country: None (occurrence: None)
  Receive Date: 20111130
  Receipt Date: 20111130
  Transmission Date: 20120403
  Serious: Yes (Hospitalization)
  Sender: FDA-Public Use
  Company Number: None

PATIENT
  Sex: Female
  Weight: 64 kg

DRUGS (2)
  1. CISPLATIN [Suspect]
     Dosage: 132 MG
     Dates: end: 20111118
  2. TAXOL [Suspect]
     Dosage: 240 MG
     Dates: end: 20111117

REACTIONS (4)
  - VOMITING [None]
  - BLOOD POTASSIUM DECREASED [None]
  - NAUSEA [None]
  - ABDOMINAL PAIN [None]
